FAERS Safety Report 8524522 (Version 11)
Quarter: 2015Q2

REPORT INFORMATION
  Report Type: Report from Study
  Country: CA (occurrence: CA)
  Receive Date: 20120420
  Receipt Date: 20150604
  Transmission Date: 20150821
  Serious: Yes (Hospitalization, Other)
  Sender: FDA-Public Use
  Company Number: CA-ROCHE-1059526

PATIENT
  Age: 65 Year
  Sex: Male
  Weight: 122 kg

DRUGS (19)
  1. FUROSEMIDE. [Concomitant]
     Active Substance: FUROSEMIDE
  2. HALIBUT OIL [Concomitant]
  3. SPIRONOLACTONE. [Concomitant]
     Active Substance: SPIRONOLACTONE
  4. ARAVA [Concomitant]
     Active Substance: LEFLUNOMIDE
  5. ACETYLSALICYLIC ACID [Concomitant]
     Active Substance: ASPIRIN
     Route: 065
  6. VITAMIN C [Concomitant]
     Active Substance: ASCORBIC ACID
  7. BISOPROLOL [Concomitant]
     Active Substance: BISOPROLOL
  8. ATORVASTATIN [Concomitant]
     Active Substance: ATORVASTATIN
  9. ACTEMRA [Suspect]
     Active Substance: TOCILIZUMAB
     Route: 042
     Dates: start: 20131112
  10. FOLIC ACID. [Concomitant]
     Active Substance: FOLIC ACID
  11. DIOVAN [Concomitant]
     Active Substance: VALSARTAN
  12. ELTROXIN [Concomitant]
     Active Substance: LEVOTHYROXINE
  13. VITAMIN B COMPLEX [Concomitant]
     Active Substance: CYANOCOBALAMIN\DEXPANTHENOL\NIACINAMIDE\PYRIDOXINE HYDROCHLORIDE\RIBOFLAVIN 5^-PHOSPHATE SODIUM\THIAMINE HYDROCHLORIDE\VITAMIN B COMPLEX
  14. ACTEMRA [Suspect]
     Active Substance: TOCILIZUMAB
     Indication: RHEUMATOID ARTHRITIS
     Route: 042
     Dates: start: 20120327
  15. HUMULIN N INSULIN [Concomitant]
  16. DIAMICRON [Concomitant]
     Active Substance: GLICLAZIDE
  17. HYDRALAZINE [Concomitant]
     Active Substance: HYDRALAZINE HYDROCHLORIDE
  18. PREDNISONE. [Concomitant]
     Active Substance: PREDNISONE
  19. EFFEXOR [Concomitant]
     Active Substance: VENLAFAXINE HYDROCHLORIDE

REACTIONS (11)
  - Nasopharyngitis [Recovered/Resolved]
  - Ulcer haemorrhage [Recovered/Resolved]
  - Malaise [Unknown]
  - Diabetic foot [Not Recovered/Not Resolved]
  - Influenza [Recovered/Resolved]
  - Hyperglycaemia [Unknown]
  - Weight decreased [Unknown]
  - Hip surgery [Not Recovered/Not Resolved]
  - Myocardial infarction [Unknown]
  - Hypotension [Unknown]
  - Bronchitis [Recovered/Resolved]

NARRATIVE: CASE EVENT DATE: 2013
